FAERS Safety Report 6078424-9 (Version None)
Quarter: 2009Q1

REPORT INFORMATION
  Report Type: 
  Country: None (occurrence: None)
  Receive Date: 20090212
  Receipt Date: 20090206
  Transmission Date: 20090719
  Serious: Yes (Other)
  Sender: FDA-Public Use
  Company Number: 1000003636

PATIENT
  Age: 56 Year
  Sex: Female
  Weight: 78.4723 kg

DRUGS (16)
  1. SAVELLA [Suspect]
     Indication: FIBROMYALGIA
     Dosage: 75 MG (25 MG QAM,50 MG QAM,ORAL;50 MG (25 MG,2 IN 1 D),ORAL;125 MG (75 MG QAM, 50 MG QPM),ORAL;100 M
     Route: 048
     Dates: start: 20061219, end: 20070102
  2. SAVELLA [Suspect]
     Indication: FIBROMYALGIA
     Dosage: 75 MG (25 MG QAM,50 MG QAM,ORAL;50 MG (25 MG,2 IN 1 D),ORAL;125 MG (75 MG QAM, 50 MG QPM),ORAL;100 M
     Route: 048
     Dates: start: 20070103, end: 20070314
  3. SAVELLA [Suspect]
     Indication: FIBROMYALGIA
     Dosage: 75 MG (25 MG QAM,50 MG QAM,ORAL;50 MG (25 MG,2 IN 1 D),ORAL;125 MG (75 MG QAM, 50 MG QPM),ORAL;100 M
     Route: 048
     Dates: start: 20070315, end: 20070823
  4. SAVELLA [Suspect]
     Indication: FIBROMYALGIA
     Dosage: 75 MG (25 MG QAM,50 MG QAM,ORAL;50 MG (25 MG,2 IN 1 D),ORAL;125 MG (75 MG QAM, 50 MG QPM),ORAL;100 M
     Route: 048
     Dates: start: 20070824, end: 20080110
  5. SAVELLA [Suspect]
     Indication: FIBROMYALGIA
     Dosage: 75 MG (25 MG QAM,50 MG QAM,ORAL;50 MG (25 MG,2 IN 1 D),ORAL;125 MG (75 MG QAM, 50 MG QPM),ORAL;100 M
     Route: 048
     Dates: start: 20080111
  6. FLONASE [Concomitant]
  7. MIRALAX [Concomitant]
  8. ORPHENADRINE CITRATE [Concomitant]
  9. XANAX [Concomitant]
  10. TRICOR [Concomitant]
  11. MULTI-VITAMIN [Concomitant]
  12. RESTASIS [Concomitant]
  13. LOVAZA [Concomitant]
  14. VITAMIN B COMPLEX CAP [Concomitant]
  15. EXCEDRIN (MIGRAINE) [Concomitant]
  16. AMLODIPINE [Concomitant]

REACTIONS (2)
  - BREAST CANCER IN SITU [None]
  - OESTROGEN RECEPTOR ASSAY POSITIVE [None]
